FAERS Safety Report 4374315-X (Version None)
Quarter: 2004Q2

REPORT INFORMATION
  Report Type: 
  Country: None (occurrence: None)
  Receive Date: 20040608
  Receipt Date: 20040608
  Transmission Date: 20050107
  Serious: Yes (Other)
  Sender: FDA-Public Use
  Company Number: None

PATIENT
  Age: 75 Year
  Sex: Female
  Weight: 99.3377 kg

DRUGS (6)
  1. NAMENDA [Suspect]
     Indication: DEMENTIA ALZHEIMER'S TYPE
     Dosage: 10 MG BID ORAL
     Route: 048
     Dates: start: 20040513, end: 20040601
  2. ARICEPT [Concomitant]
  3. LIPITOR [Concomitant]
  4. VITAMIN E [Concomitant]
  5. B COMPLEX VIT [Concomitant]
  6. SYNTHROID [Concomitant]

REACTIONS (2)
  - HALLUCINATION, VISUAL [None]
  - MUSCLE CRAMP [None]
